FAERS Safety Report 9698505 (Version 1)
Quarter: 2013Q4

REPORT INFORMATION
  Report Type: Spontaneous
  Country: US (occurrence: US)
  Receive Date: 20131120
  Receipt Date: 20131120
  Transmission Date: 20140711
  Serious: Yes (Other)
  Sender: FDA-Public Use
  Company Number: US-TEVA-445588USA

PATIENT
  Sex: Male

DRUGS (1)
  1. CLARAVIS [Suspect]
     Route: 048
     Dates: start: 20130910

REACTIONS (2)
  - Rectal haemorrhage [Unknown]
  - Bowel movement irregularity [Unknown]
